FAERS Safety Report 7684752-3 (Version None)
Quarter: 2011Q3

REPORT INFORMATION
  Report Type: 
  Country: None (occurrence: None)
  Receive Date: 20110816
  Receipt Date: 20110803
  Transmission Date: 20111222
  Serious: Yes (Disabling, Other)
  Sender: FDA-Public Use
  Company Number: US-ELI_LILLY_AND_COMPANY-US201108003172

PATIENT
  Sex: Female

DRUGS (3)
  1. FORTEO [Suspect]
     Indication: OSTEOPOROSIS
     Dosage: 20 UG, QD
     Dates: start: 20100801
  2. BACLOFEN [Concomitant]
  3. HYDROCODONE [Concomitant]

REACTIONS (14)
  - INJECTION SITE HAEMATOMA [None]
  - INTERVERTEBRAL DISC PROTRUSION [None]
  - HYPERCHLORHYDRIA [None]
  - FAECES HARD [None]
  - PAIN IN EXTREMITY [None]
  - ACCIDENT [None]
  - INJECTION SITE PAIN [None]
  - CALCIUM METABOLISM DISORDER [None]
  - BACK PAIN [None]
  - ABASIA [None]
  - HAND FRACTURE [None]
  - SPINAL FRACTURE [None]
  - UPPER LIMB FRACTURE [None]
  - DYSARTHRIA [None]
